FAERS Safety Report 8920080 (Version 2)
Quarter: 2012Q4

REPORT INFORMATION
  Report Type: 
  Country: FR (occurrence: FR)
  Receive Date: 20121121
  Receipt Date: 20121204
  Transmission Date: 20130627
  Serious: Yes (Other)
  Sender: FDA-Public Use
  Company Number: FR-BRISTOL-MYERS SQUIBB COMPANY-17134800

PATIENT
  Sex: Male

DRUGS (1)
  1. ONGLYZA TABS [Suspect]

REACTIONS (1)
  - Nephrotic syndrome [Unknown]
